APPROVED DRUG PRODUCT: LEVOBUNOLOL HYDROCHLORIDE
Active Ingredient: LEVOBUNOLOL HYDROCHLORIDE
Strength: 0.25%
Dosage Form/Route: SOLUTION/DROPS;OPHTHALMIC
Application: A074851 | Product #001
Applicant: ALCON LABORATORIES INC
Approved: Oct 28, 1996 | RLD: No | RS: No | Type: DISCN